FAERS Safety Report 7765241-4 (Version None)
Quarter: 2011Q3

REPORT INFORMATION
  Report Type: 
  Country: None (occurrence: None)
  Receive Date: 20110921
  Receipt Date: 20110913
  Transmission Date: 20111222
  Serious: Yes (Death)
  Sender: FDA-Public Use
  Company Number: JP-GLAXOSMITHKLINE-B0616130A

PATIENT
  Age: 4 Year
  Sex: Female

DRUGS (2)
  1. ALKERAN [Suspect]
     Indication: STEM CELL TRANSPLANT
     Dosage: 70MGM2 PER DAY
     Route: 042
     Dates: start: 20030219, end: 20030227
  2. THIOTEPA [Suspect]
     Indication: STEM CELL TRANSPLANT
     Dates: start: 20030219, end: 20030227

REACTIONS (1)
  - PNEUMONIA [None]
